FAERS Safety Report 6202616-9 (Version None)
Quarter: 2009Q2

REPORT INFORMATION
  Report Type: 
  Country: None (occurrence: None)
  Receive Date: 20090526
  Receipt Date: 20090519
  Transmission Date: 20091009
  Serious: Yes (Other)
  Sender: FDA-Public Use
  Company Number: US-BAYER-200911377BCC

PATIENT
  Age: 59 Year
  Sex: Male
  Weight: 136 kg

DRUGS (15)
  1. ORIGINAL ALKA-SELTZER TABLETS [Suspect]
     Indication: ABDOMINAL DISCOMFORT
     Dosage: TOTAL DAILY DOSE: 4 DF
     Dates: start: 20090416, end: 20090417
  2. ORIGINAL ALKA-SELTZER TABLETS [Suspect]
     Dosage: AFTER ANGIOPLASTY HE TOOK ONCE TO TWICE A WEEK IN 2002 OR 2003
  3. ASPIRIN [Suspect]
     Indication: ISCHAEMIC HEART DISEASE PROPHYLAXIS
     Dosage: POST ANGIOPLASTY BEGAN 81 MG DAILY
  4. ACTOS [Concomitant]
  5. DILTIAZEM [Concomitant]
  6. GLIMEPIRIDE [Concomitant]
  7. METFORMIN HCL [Concomitant]
  8. TOPROL-XL [Concomitant]
  9. ORACEA [Concomitant]
  10. QUINAPRIL [Concomitant]
  11. PLAVIX [Concomitant]
  12. SIMVASTATIN [Concomitant]
  13. TERAZOSIN HCL [Concomitant]
  14. METROGEL [Concomitant]
  15. OMEPRAZOLE [Concomitant]

REACTIONS (7)
  - DIZZINESS [None]
  - GASTRITIS [None]
  - GASTRITIS EROSIVE [None]
  - HAEMATOCHEZIA [None]
  - LETHARGY [None]
  - PRESYNCOPE [None]
  - RED BLOOD CELL COUNT DECREASED [None]
